FAERS Safety Report 5112569-2 (Version None)
Quarter: 2006Q3

REPORT INFORMATION
  Report Type: 
  Country: None (occurrence: None)
  Receive Date: 20060919
  Receipt Date: 20060904
  Transmission Date: 20061208
  Serious: Yes (Hospitalization, Other)
  Sender: FDA-Public Use
  Company Number: 2006074330

PATIENT
  Age: 79 Year
  Sex: Female
  Weight: 55.6 kg

DRUGS (10)
  1. METFORMIN HCL [Suspect]
     Indication: BLOOD GLUCOSE INCREASED
     Dosage: 1500 MG (UNKNOWN), ORAL
     Route: 048
     Dates: start: 19990101, end: 20060228
  2. ATORVASTATIN CALCIUM [Suspect]
     Indication: BLOOD CHOLESTEROL INCREASED
     Dosage: 10 MG, ORAL
     Route: 048
     Dates: start: 20040801, end: 20060228
  3. AMILORIDE (AMILORIDE) [Concomitant]
  4. ASPIRIN [Concomitant]
  5. PRAZOSIN HCL [Concomitant]
  6. GLICLAZIDE (GLICLAZIDE) [Concomitant]
  7. RABEPRAZOLE SODIUM [Concomitant]
  8. TIMOLOL MALEATE (TIMOLOL MALEATR) [Concomitant]
  9. LATANOPROST [Concomitant]
  10. DONEPEZIL HCL [Concomitant]

REACTIONS (4)
  - ANOREXIA [None]
  - FOOD AVERSION [None]
  - NAUSEA [None]
  - WEIGHT DECREASED [None]
